FAERS Safety Report 13145137 (Version 4)
Quarter: 2017Q1

REPORT INFORMATION
  Report Type: Spontaneous
  Country: TR (occurrence: TR)
  Receive Date: 20170124
  Receipt Date: 20170227
  Transmission Date: 20170428
  Serious: Yes (Other)
  Sender: FDA-Public Use
  Company Number: TR-PFIZER INC-2017030375

PATIENT
  Age: 43 Year
  Sex: Female

DRUGS (3)
  1. MILK THISTLE [Concomitant]
     Active Substance: MILK THISTLE
     Dosage: UNK
  2. VITAMIN D [Concomitant]
     Active Substance: CHOLECALCIFEROL
     Dosage: UNK
  3. CHAMPIX [Suspect]
     Active Substance: VARENICLINE TARTRATE
     Indication: SMOKING CESSATION THERAPY
     Dosage: UNK

REACTIONS (4)
  - Diplopia [Not Recovered/Not Resolved]
  - VIth nerve paralysis [Not Recovered/Not Resolved]
  - Disease recurrence [Not Recovered/Not Resolved]
  - Pharyngeal disorder [Not Recovered/Not Resolved]
